FAERS Safety Report 13028299 (Version 1)
Quarter: 2016Q4

REPORT INFORMATION
  Report Type: Other
  Country: SE (occurrence: SE)
  Receive Date: 20161214
  Receipt Date: 20161214
  Transmission Date: 20170207
  Serious: Yes (Other)
  Sender: FDA-Public Use
  Company Number: SE-CELLTRION INC.-2016SE013377

PATIENT

DRUGS (3)
  1. REMSIMA [Suspect]
     Active Substance: INFLIXIMAB
     Dosage: 200 MG, UNK
     Route: 065
     Dates: start: 20161019, end: 20161019
  2. REMSIMA [Suspect]
     Active Substance: INFLIXIMAB
     Indication: RHEUMATOID ARTHRITIS
     Dosage: 200 MG, UNK
     Route: 065
     Dates: start: 20161006, end: 20161006
  3. METHOTREXATE. [Concomitant]
     Active Substance: METHOTREXATE
     Route: 065

REACTIONS (4)
  - Weight decreased [Not Recovered/Not Resolved]
  - Depressed mood [Not Recovered/Not Resolved]
  - Apathy [Not Recovered/Not Resolved]
  - Decreased appetite [Not Recovered/Not Resolved]

NARRATIVE: CASE EVENT DATE: 201610
